FAERS Safety Report 13582753 (Version 1)
Quarter: 2017Q2

REPORT INFORMATION
  Report Type: Spontaneous
  Country: JP (occurrence: JP)
  Receive Date: 20170525
  Receipt Date: 20170525
  Transmission Date: 20170830
  Serious: Yes (Hospitalization)
  Sender: FDA-Public Use
  Company Number: JP-BAYER-2017-095810

PATIENT
  Age: 30 Year
  Sex: Female

DRUGS (2)
  1. BAYASPIRIN 100 MG [Suspect]
     Active Substance: ASPIRIN
     Dosage: DAILY DOSE 100 MG
     Route: 048
  2. ANAESTHESIE [Suspect]
     Active Substance: PROPIPOCAINE
     Dosage: UNK

REACTIONS (2)
  - Foetal growth restriction [None]
  - Exposure during pregnancy [Recovered/Resolved]
